FAERS Safety Report 4678353-9 (Version None)
Quarter: 2005Q2

REPORT INFORMATION
  Report Type: 
  Country: None (occurrence: None)
  Receive Date: 20050527
  Receipt Date: 20050518
  Transmission Date: 20051028
  Serious: Yes (Hospitalization)
  Sender: FDA-Public Use
  Company Number: 2005059252

PATIENT
  Age: 64 Year
  Sex: Male
  Weight: 72 kg

DRUGS (3)
  1. NORVASC [Suspect]
     Indication: HYPERTENSION
     Dosage: 5 MG (5 MG, 1 IN 1 D), ORAL
     Route: 048
     Dates: start: 20050301, end: 20050329
  2. NU LOTAN (LOSARTAN POTASSIUM) [Suspect]
     Indication: HYPERTENSION
     Dosage: 50 MG (50 MG, QD), ORAL
     Route: 048
     Dates: start: 20050202, end: 20050329
  3. PLETAL [Suspect]
     Indication: CEREBRAL INFARCTION
     Dosage: 200 MG (100 MG, BID), ORAL
     Route: 048
     Dates: start: 20050210, end: 20050329

REACTIONS (6)
  - AGRANULOCYTOSIS [None]
  - C-REACTIVE PROTEIN INCREASED [None]
  - EAR PAIN [None]
  - EATING DISORDER [None]
  - PHARYNGOLARYNGEAL PAIN [None]
  - PYREXIA [None]
